FAERS Safety Report 14017889 (Version 1)
Quarter: 2017Q3

REPORT INFORMATION
  Report Type: Spontaneous
  Country: US (occurrence: None)
  Receive Date: 20170927
  Receipt Date: 20170927
  Transmission Date: 20171128
  Serious: Yes (Disabling)
  Sender: FDA-Public Use
  Company Number: None

PATIENT
  Age: 69 Year
  Sex: Male
  Weight: 72.57 kg

DRUGS (7)
  1. LYRICA [Suspect]
     Active Substance: PREGABALIN
     Indication: POST HERPETIC NEURALGIA
     Dosage: 75 MG 2X DAY CHANGED TO 150 MG 2X DAY, MOUTH
     Route: 048
     Dates: start: 20170202, end: 20170615
  2. IBUPROFEN. [Concomitant]
     Active Substance: IBUPROFEN
  3. LYRICA [Suspect]
     Active Substance: PREGABALIN
     Indication: PAIN
     Dosage: 75 MG 2X DAY CHANGED TO 150 MG 2X DAY, MOUTH
     Route: 048
     Dates: start: 20170202, end: 20170615
  4. LISINOPRIL. [Concomitant]
     Active Substance: LISINOPRIL
  5. CENTRUM SILVER MULTIVITAMIN [Concomitant]
  6. AAA [Concomitant]
  7. LYRICA [Suspect]
     Active Substance: PREGABALIN
     Indication: HERPES ZOSTER
     Dosage: 75 MG 2X DAY CHANGED TO 150 MG 2X DAY, MOUTH
     Route: 048
     Dates: start: 20170202, end: 20170615

REACTIONS (12)
  - Insomnia [None]
  - Asthenia [None]
  - Withdrawal syndrome [None]
  - Disturbance in attention [None]
  - Muscle spasms [None]
  - Bladder pain [None]
  - Memory impairment [None]
  - Pain [None]
  - Dysuria [None]
  - Fatigue [None]
  - Myalgia [None]
  - Arthralgia [None]

NARRATIVE: CASE EVENT DATE: 20170504
